FAERS Safety Report 8353030-1 (Version None)
Quarter: 2012Q2

REPORT INFORMATION
  Report Type: 
  Country: None (occurrence: None)
  Receive Date: 20120511
  Receipt Date: 20120430
  Transmission Date: 20120825
  Serious: Yes (Other)
  Sender: FDA-Public Use
  Company Number: MA-BRISTOL-MYERS SQUIBB COMPANY-16558553

PATIENT
  Age: 54 Year
  Sex: Female

DRUGS (3)
  1. CYCLOPHOSPHAMIDE [Suspect]
     Indication: BREAST CANCER METASTATIC
  2. DOXORUBICIN HCL [Suspect]
     Indication: BREAST CANCER METASTATIC
  3. TAMOXIFEN CITRATE [Suspect]
     Indication: BREAST CANCER METASTATIC

REACTIONS (1)
  - THROMBOPHLEBITIS [None]
